FAERS Safety Report 15316213 (Version 1)
Quarter: 2018Q3

REPORT INFORMATION
  Report Type: Spontaneous
  Country: US (occurrence: US)
  Receive Date: 20180816
  Receipt Date: 20180816
  Transmission Date: 20181010
  Serious: Yes (Hospitalization)
  Sender: FDA-Public Use
  Company Number: None

PATIENT
  Sex: Female

DRUGS (9)
  1. IBUPROFEN. [Concomitant]
     Active Substance: IBUPROFEN
  2. BENZONATATE. [Concomitant]
     Active Substance: BENZONATATE
  3. ATORVASTATIN [Concomitant]
     Active Substance: ATORVASTATIN
  4. CYCLOBENZAPR [Concomitant]
     Active Substance: CYCLOBENZAPRINE
  5. AMOXICILLIN. [Concomitant]
     Active Substance: AMOXICILLIN
  6. FASLODEX [Concomitant]
     Active Substance: FULVESTRANT
  7. ESTRADIOL. [Concomitant]
     Active Substance: ESTRADIOL
  8. IBRANCE [Suspect]
     Active Substance: PALBOCICLIB
     Indication: NEOPLASM MALIGNANT
     Route: 048
     Dates: start: 20171222
  9. BACLOFE [Concomitant]

REACTIONS (2)
  - Surgery [None]
  - Drug dose omission [None]
